FAERS Safety Report 14262359 (Version 1)
Quarter: 2017Q4

REPORT INFORMATION
  Report Type: Spontaneous
  Country: US (occurrence: US)
  Receive Date: 20171208
  Receipt Date: 20171208
  Transmission Date: 20180321
  Serious: Yes (Other)
  Sender: FDA-Public Use
  Company Number: None

PATIENT
  Age: 81 Year
  Sex: Male

DRUGS (7)
  1. GENGRAF [Suspect]
     Active Substance: CYCLOSPORINE
     Indication: RENAL TRANSPLANT
     Route: 048
     Dates: start: 20061014
  2. LISINOPRIL. [Concomitant]
     Active Substance: LISINOPRIL
  3. TAMSULOSIN [Concomitant]
     Active Substance: TAMSULOSIN
  4. VITAMIN D [Concomitant]
     Active Substance: CHOLECALCIFEROL
  5. MYCOPHENOLATE [Suspect]
     Active Substance: MYCOPHENOLIC ACID
     Indication: RENAL TRANSPLANT
     Route: 048
     Dates: start: 20131026
  6. LIPITOR [Concomitant]
     Active Substance: ATORVASTATIN CALCIUM
  7. FERROUS [Concomitant]
     Active Substance: IRON

REACTIONS (2)
  - Condition aggravated [None]
  - Hernia repair [None]
